FAERS Safety Report 10439624 (Version 1)
Quarter: 2014Q3

REPORT INFORMATION
  Report Type: Spontaneous
  Country: JP (occurrence: JP)
  Receive Date: 20140908
  Receipt Date: 20140908
  Transmission Date: 20150326
  Serious: Yes (Hospitalization)
  Sender: FDA-Public Use
  Company Number: JP-PFIZER INC-2014243801

PATIENT
  Age: 10 Decade

DRUGS (2)
  1. GABAPEN [Suspect]
     Active Substance: GABAPENTIN
     Indication: PAIN
     Dosage: UNK, DAILY
  2. PANALDINE [Concomitant]
     Active Substance: TICLOPIDINE HYDROCHLORIDE
     Dosage: UNK

REACTIONS (1)
  - Enterocolitis [Unknown]
